FAERS Safety Report 6844352-1 (Version None)
Quarter: 2010Q3

REPORT INFORMATION
  Report Type: 
  Country: None (occurrence: None)
  Receive Date: 20100712
  Receipt Date: 20100701
  Transmission Date: 20110219
  Serious: Yes (Hospitalization)
  Sender: FDA-Public Use
  Company Number: 009513

PATIENT
  Sex: Female
  Weight: 93 kg

DRUGS (35)
  1. CERTOLIZUMAB PEGOL (CERTOLIZUMAB PEGOL) [Suspect]
     Indication: RHEUMATOID ARTHRITIS
     Dosage: 400 MG 1X/2 WEEKS SUBCUTANEOUS, 200 MG 1X/2 WEEKS,
     Route: 058
     Dates: start: 20050913, end: 20071119
  2. CERTOLIZUMAB PEGOL (CERTOLIZUMAB PEGOL) [Suspect]
     Indication: RHEUMATOID ARTHRITIS
     Dosage: 400 MG 1X/2 WEEKS SUBCUTANEOUS, 200 MG 1X/2 WEEKS,
     Route: 058
     Dates: start: 20071203, end: 20100323
  3. CERTOLIZUMAB PEGOL (CERTOLIZUMAB PEGOL) [Suspect]
     Indication: RHEUMATOID ARTHRITIS
     Dosage: 400 MG 1X/2 WEEKS SUBCUTANEOUS, 200 MG 1X/2 WEEKS,
     Route: 058
     Dates: start: 20100503
  4. METHOTREXATE [Concomitant]
  5. FOLIC ACID [Concomitant]
  6. MELOXICAM [Concomitant]
  7. METHYLPREDNISOLONE ACETATE [Concomitant]
  8. TRIAMCINOLONE [Concomitant]
  9. LIDOCAINE HYDROCHLORIDE [Concomitant]
  10. DICLOBERL [Concomitant]
  11. DICLOBERL [Concomitant]
  12. DICLAC [Concomitant]
  13. CALCIUM [Concomitant]
  14. COLECALCIFEROL [Concomitant]
  15. MAGNE-B6 [Concomitant]
  16. DIAZEPAM [Concomitant]
  17. MILDRONAT [Concomitant]
  18. CIPROFLOXACIN [Concomitant]
  19. MONOPRIL [Concomitant]
  20. CAPTOPRIL [Concomitant]
  21. METOPROLOL SUCCINATE [Concomitant]
  22. POTASSIUM CITRATE [Concomitant]
  23. PARACETAMOL [Concomitant]
  24. AMOXICILLIN [Concomitant]
  25. CLAVULANATE POTASSIUM [Concomitant]
  26. TEARS NATURALE [Concomitant]
  27. TOBREX [Concomitant]
  28. AMOXICILLIN AND CLAVULANATE POTASSIUM [Concomitant]
  29. XYLOMETAZOLINE HYDROCHLORIDE [Concomitant]
  30. MILGAMMA [Concomitant]
  31. PIRACETAM [Concomitant]
  32. CAVINTON [Concomitant]
  33. BROMAZEPAM [Concomitant]
  34. MOMETASONE FUROATE [Concomitant]
  35. MULTI-TABS NEO [Concomitant]

REACTIONS (10)
  - CERVICITIS [None]
  - CYSTITIS [None]
  - EXTRASYSTOLES [None]
  - HYPERTENSION [None]
  - INFLUENZA [None]
  - KERATITIS [None]
  - LICHEN PLANUS [None]
  - OSTEOCHONDROSIS [None]
  - OTITIS MEDIA ACUTE [None]
  - SPINAL OSTEOARTHRITIS [None]
